FAERS Safety Report 13681297 (Version 2)
Quarter: 2017Q3

REPORT INFORMATION
  Report Type: Spontaneous
  Country: US (occurrence: US)
  Receive Date: 20170623
  Receipt Date: 20170802
  Transmission Date: 20171127
  Serious: Yes (Disabling)
  Sender: FDA-Public Use
  Company Number: US-PFIZER INC-2017266675

PATIENT
  Age: 65 Year
  Sex: Female
  Weight: 74.84 kg

DRUGS (3)
  1. GABAPENTIN. [Suspect]
     Active Substance: GABAPENTIN
     Indication: FACIAL PAIN
     Dosage: 600 MG, 3X/DAY
  2. GABAPENTIN. [Suspect]
     Active Substance: GABAPENTIN
     Indication: NEURALGIA
     Dosage: 1200 MG, DAILY (300 MG, TAKES 1 IN THE MORNING, ONE IN THE AFTERNOON, AND 2 IN THE EVENING)
     Dates: start: 20170617
  3. GABAPENTIN. [Suspect]
     Active Substance: GABAPENTIN
     Indication: NASAL INJURY
     Dosage: TAKE DIFFERENT DOSE, EVERY DAY, NO MORE THAN 3 A DAY
     Dates: start: 201604, end: 201706

REACTIONS (13)
  - Feeling drunk [Not Recovered/Not Resolved]
  - Feeling abnormal [Not Recovered/Not Resolved]
  - Dizziness [Not Recovered/Not Resolved]
  - Anxiety [Not Recovered/Not Resolved]
  - Tremor [Not Recovered/Not Resolved]
  - Malaise [Not Recovered/Not Resolved]
  - Drug ineffective for unapproved indication [Unknown]
  - Decreased appetite [Unknown]
  - Hyperhidrosis [Not Recovered/Not Resolved]
  - Crying [Not Recovered/Not Resolved]
  - Weight decreased [Unknown]
  - Intentional product misuse [Unknown]
  - Gait disturbance [Not Recovered/Not Resolved]

NARRATIVE: CASE EVENT DATE: 201604
